FAERS Safety Report 24167402 (Version 2)
Quarter: 2024Q3

REPORT INFORMATION
  Report Type: Report from Study
  Country: US (occurrence: US)
  Receive Date: 20240802
  Receipt Date: 20240807
  Transmission Date: 20241017
  Serious: Yes (Death)
  Sender: BLUEPRINT MEDICINES
  Company Number: US-ROCHE-10000033978

PATIENT

DRUGS (1)
  1. GAVRETO [Suspect]
     Active Substance: PRALSETINIB
     Indication: Lung neoplasm malignant
     Dosage: MORE DOSAGE INFORMATION IS 60 CAPSULE IN 1 BOTTLE
     Route: 048
     Dates: end: 20240307

REACTIONS (1)
  - Death [Fatal]

NARRATIVE: CASE EVENT DATE: 20240525
